FAERS Safety Report 10907009 (Version 1)
Quarter: 2015Q1

REPORT INFORMATION
  Report Type: Spontaneous
  Country: US (occurrence: US)
  Receive Date: 20150312
  Receipt Date: 20150312
  Transmission Date: 20150721
  Serious: Yes (Hospitalization)
  Sender: FDA-Public Use
  Company Number: US-CELGENE-USA-2015022645

PATIENT
  Age: 64 Year
  Sex: Male
  Weight: 86.26 kg

DRUGS (2)
  1. REVLIMID [Suspect]
     Active Substance: LENALIDOMIDE
     Route: 048
     Dates: start: 201502
  2. REVLIMID [Suspect]
     Active Substance: LENALIDOMIDE
     Indication: PLASMA CELL MYELOMA
     Route: 048
     Dates: start: 201203

REACTIONS (4)
  - Meningioma [Unknown]
  - Fatigue [Unknown]
  - Plasma cell myeloma [Unknown]
  - Mental status changes [Recovering/Resolving]

NARRATIVE: CASE EVENT DATE: 20141227
